FAERS Safety Report 7896177-6 (Version None)
Quarter: 2011Q4

REPORT INFORMATION
  Report Type: 
  Country: None (occurrence: None)
  Receive Date: 20111106
  Receipt Date: 20110906
  Transmission Date: 20120403
  Serious: No
  Sender: FDA-Public Use
  Company Number: US-AMGEN-USASP2011045548

PATIENT
  Sex: Female

DRUGS (2)
  1. ENBREL [Suspect]
     Indication: PSORIASIS
     Dosage: 50 MG, 2 TIMES/WK
     Dates: start: 20060801
  2. ANTIBIOTIC                         /00011701/ [Suspect]
     Dosage: UNK
     Dates: start: 20110801, end: 20110801

REACTIONS (2)
  - PSORIASIS [None]
  - VERTIGO [None]
